FAERS Safety Report 17004834 (Version 3)
Quarter: 2020Q2

REPORT INFORMATION
  Report Type: Spontaneous
  Country: KR (occurrence: KR)
  Receive Date: 20191107
  Receipt Date: 20200626
  Transmission Date: 20200713
  Serious: Yes (Death, Other)
  Sender: FDA-Public Use
  Company Number: KR-AMGEN-KORSP2019183745

PATIENT
  Age: 67 Year
  Sex: Female

DRUGS (2)
  1. CYTOXAN [Concomitant]
     Active Substance: CYCLOPHOSPHAMIDE
     Dosage: 150 MILLIGRAM/SQ. METER FOR 2 DAYS
  2. BLINCYTO [Suspect]
     Active Substance: BLINATUMOMAB
     Indication: B PRECURSOR TYPE ACUTE LEUKAEMIA
     Dosage: UNK
     Route: 065
     Dates: start: 20180813

REACTIONS (9)
  - Bone lesion [Unknown]
  - IIIrd nerve paralysis [Unknown]
  - Cytopenia [Fatal]
  - Cytokine release syndrome [Unknown]
  - Multiple organ dysfunction syndrome [Fatal]
  - Clavicle fracture [Unknown]
  - Infection [Fatal]
  - Ultrasound kidney abnormal [Unknown]
  - Central nervous system leukaemia [Unknown]

NARRATIVE: CASE EVENT DATE: 2018
